FAERS Safety Report 12770074 (Version 1)
Quarter: 2016Q3

REPORT INFORMATION
  Report Type: Spontaneous
  Country: US (occurrence: US)
  Receive Date: 20160922
  Receipt Date: 20160922
  Transmission Date: 20161109
  Serious: No
  Sender: FDA-Public Use
  Company Number: US-ASTRAZENECA-2016SE96338

PATIENT
  Age: 15995 Day
  Sex: Female

DRUGS (17)
  1. ADDERALL XR [Concomitant]
     Active Substance: AMPHETAMINE ASPARTATE\AMPHETAMINE SULFATE\DEXTROAMPHETAMINE SACCHARATE\DEXTROAMPHETAMINE SULFATE
     Dosage: 24 HR CAPSULE, 30MG, EVERY MORNING
     Route: 048
     Dates: start: 20160820
  2. LYRICA [Concomitant]
     Active Substance: PREGABALIN
  3. LATEX [Concomitant]
     Active Substance: NATURAL LATEX RUBBER
  4. ABREVA [Concomitant]
     Active Substance: DOCOSANOL
     Indication: ORAL HERPES
     Dosage: APPLY TOPICALLY THREE TIMES DALLY
     Dates: start: 20160727
  5. FLEXERIL [Concomitant]
     Active Substance: CYCLOBENZAPRINE HYDROCHLORIDE
     Indication: MUSCLE SPASMS
     Route: 048
     Dates: start: 20160824, end: 20160903
  6. NEURONTIN [Concomitant]
     Active Substance: GABAPENTIN
     Route: 048
  7. ARMOUR THYROID [Concomitant]
     Active Substance: THYROID, PORCINE
     Route: 048
     Dates: start: 20160701
  8. PRILOSEC [Concomitant]
     Active Substance: OMEPRAZOLE MAGNESIUM
     Route: 048
     Dates: start: 20160616
  9. MORPHINE [Concomitant]
     Active Substance: MORPHINE
  10. KLONOPIN [Concomitant]
     Active Substance: CLONAZEPAM
     Indication: ANXIETY
     Route: 048
     Dates: start: 20160507
  11. SEROQUEL [Suspect]
     Active Substance: QUETIAPINE FUMARATE
     Route: 048
  12. VALTREX [Concomitant]
     Active Substance: VALACYCLOVIR HYDROCHLORIDE
     Route: 048
     Dates: start: 20160609
  13. ADHESIVE [Concomitant]
  14. ABILIFY [Concomitant]
     Active Substance: ARIPIPRAZOLE
  15. LODINE [Concomitant]
     Active Substance: ETODOLAC
     Dosage: 24HR TABLET, DAILY
     Route: 048
     Dates: start: 20160824
  16. PROZAC [Concomitant]
     Active Substance: FLUOXETINE HYDROCHLORIDE
     Route: 048
     Dates: start: 20160705
  17. TESSALON [Concomitant]
     Active Substance: BENZONATATE
     Route: 048
     Dates: start: 20160314

REACTIONS (4)
  - Hallucination, auditory [Unknown]
  - Drug hypersensitivity [Unknown]
  - Hypersensitivity [Unknown]
  - Drug intolerance [Unknown]

NARRATIVE: CASE EVENT DATE: 20160411
